FAERS Safety Report 7283123-1 (Version None)
Quarter: 2011Q1

REPORT INFORMATION
  Report Type: 
  Country: None (occurrence: None)
  Receive Date: 20110209
  Receipt Date: 20100928
  Transmission Date: 20110831
  Serious: No
  Sender: FDA-Public Use
  Company Number: A0884278A

PATIENT
  Age: 51 Year
  Sex: Male

DRUGS (1)
  1. PAXIL CR [Suspect]
     Route: 048

REACTIONS (1)
  - HYPERSENSITIVITY [None]
